FAERS Safety Report 10551854 (Version 1)
Quarter: 2014Q4

REPORT INFORMATION
  Report Type: Spontaneous
  Country: US (occurrence: None)
  Receive Date: 20141027
  Receipt Date: 20141027
  Transmission Date: 20150529
  Serious: Yes (Hospitalization, Other)
  Sender: FDA-Public Use
  Company Number: US-ZYDUS-005298

PATIENT
  Age: 65 Year
  Sex: Male

DRUGS (4)
  1. METHOTREXATE (METHOTREXATE) [Suspect]
     Active Substance: METHOTREXATE
  2. OMEPRAZOLE (OMEPRAZOLE) [Suspect]
     Active Substance: OMEPRAZOLE
  3. MELOXICAM (MELOXICAM) [Suspect]
     Active Substance: MELOXICAM
  4. FUROSEMIDE (FUROSEMIDE) [Suspect]
     Active Substance: FUROSEMIDE

REACTIONS (7)
  - Pancytopenia [None]
  - Skin erosion [None]
  - Psoriasis [None]
  - Drug interaction [None]
  - Toxicity to various agents [None]
  - Hepatic enzyme increased [None]
  - Renal failure [None]
